FAERS Safety Report 5715097-6 (Version None)
Quarter: 2008Q2

REPORT INFORMATION
  Report Type: 
  Country: None (occurrence: None)
  Receive Date: 20080423
  Receipt Date: 20080327
  Transmission Date: 20081010
  Serious: No
  Sender: FDA-Public Use
  Company Number: US-BOEHRINGER INGELHEIM GMBH, GERMANY-2008-BP-04887BP

PATIENT
  Sex: Female

DRUGS (14)
  1. SPIRIVA [Suspect]
     Indication: CHRONIC OBSTRUCTIVE PULMONARY DISEASE
     Dates: start: 20060101
  2. ATROVENT HFA [Concomitant]
  3. LEVOXYL [Concomitant]
  4. PREMARIN [Concomitant]
  5. ACTONEL [Concomitant]
  6. XOPENEX HFA INHALEER [Concomitant]
  7. CALCIUM WITH D MAG ZINC [Concomitant]
  8. FOLIC ACID [Concomitant]
  9. ASCORBIC ACID [Concomitant]
  10. VITAMIN E [Concomitant]
  11. MULTI-VITAMINS [Concomitant]
  12. ALEVE [Concomitant]
  13. TYLENOL [Concomitant]
  14. ASPIRIN [Concomitant]

REACTIONS (1)
  - DRUG INEFFECTIVE [None]
